FAERS Safety Report 4491792-4 (Version None)
Quarter: 2004Q4

REPORT INFORMATION
  Report Type: 
  Country: None (occurrence: None)
  Receive Date: 20041029
  Receipt Date: 20041018
  Transmission Date: 20050328
  Serious: Yes (Hospitalization)
  Sender: FDA-Public Use
  Company Number: RS004563-GB

PATIENT
  Age: 82 Year
  Sex: Female
  Weight: 55 kg

DRUGS (5)
  1. RABEPRAZOLE SODIUM [Suspect]
     Indication: HIATUS HERNIA
     Dosage: 20 MG, ORAL
     Route: 048
     Dates: end: 20040624
  2. THIAMINE                               (THIAMINE) [Concomitant]
  3. ARTIFICIAL TEARS                          (ARTIFICIAL TEARS) [Concomitant]
  4. METRONIDAZOLE [Concomitant]
  5. THYROXINE                       (LEVOTHYROXINE SODIUM) [Concomitant]

REACTIONS (4)
  - ANAEMIA [None]
  - HALLUCINATION, AUDITORY [None]
  - INFLAMMATION [None]
  - PARANOIA [None]
